FAERS Safety Report 20098479 (Version 1)
Quarter: 2021Q4

REPORT INFORMATION
  Report Type: Spontaneous
  Country: GR (occurrence: GR)
  Receive Date: 20211122
  Receipt Date: 20211122
  Transmission Date: 20220303
  Serious: Yes (Death, Other)
  Sender: FDA-Public Use
  Company Number: GR-PFIZER INC-202101125487

PATIENT
  Age: 73 Year
  Sex: Female

DRUGS (4)
  1. AZITHROMYCIN [Suspect]
     Active Substance: AZITHROMYCIN
     Indication: Antibiotic therapy
     Dosage: UNK
  2. VFEND [Suspect]
     Active Substance: VORICONAZOLE
     Indication: Aspergillus infection
     Dosage: UNK
     Route: 042
  3. LEVOFLOXACINE                      /01278901/ [Concomitant]
     Indication: Antibiotic therapy
     Dosage: UNK
  4. ERTAPENEM [Concomitant]
     Active Substance: ERTAPENEM
     Indication: Antibiotic therapy
     Dosage: UNK

REACTIONS (3)
  - Drug ineffective [Fatal]
  - Aspergillus infection [Fatal]
  - Respiratory failure [Unknown]
